FAERS Safety Report 10304708 (Version 1)
Quarter: 2014Q3

REPORT INFORMATION
  Report Type: Spontaneous
  Country: CH (occurrence: None)
  Receive Date: 20140710
  Receipt Date: 20140710
  Transmission Date: 20150326
  Serious: Yes (Other)
  Sender: FDA-Public Use
  Company Number: 20140397

PATIENT
  Age: 40 Year
  Sex: Female

DRUGS (4)
  1. FERINJECT [Suspect]
     Active Substance: FERRIC CARBOXYMALTOSE
     Indication: ANAEMIA
     Dosage: 1000 MG IN 100 ML NS
     Dates: start: 20140509, end: 20140509
  2. ATACAND [Concomitant]
     Active Substance: CANDESARTAN CILEXETIL
  3. THROXIN (LEVOTHYROXINE SODIUM) [Concomitant]
  4. LYRICA [Concomitant]
     Active Substance: PREGABALIN

REACTIONS (3)
  - Dyspnoea [None]
  - Discomfort [None]
  - Tachycardia [None]

NARRATIVE: CASE EVENT DATE: 201405
